FAERS Safety Report 7305587-7 (Version None)
Quarter: 2011Q1

REPORT INFORMATION
  Report Type: 
  Country: None (occurrence: None)
  Receive Date: 20110222
  Receipt Date: 20110217
  Transmission Date: 20110831
  Serious: Yes (Death)
  Sender: FDA-Public Use
  Company Number: US-ASTRAZENECA-2010SE07887

PATIENT
  Age: 33499 Day
  Sex: Male
  Weight: 78 kg

DRUGS (3)
  1. SEROQUEL XR [Suspect]
     Indication: INSOMNIA
     Route: 048
     Dates: start: 20091101, end: 20100221
  2. ATENOLOL [Concomitant]
     Indication: HYPERTENSION
     Route: 048
  3. SEROQUEL XR [Suspect]
     Indication: HALLUCINATION
     Route: 048
     Dates: start: 20091101, end: 20100221

REACTIONS (4)
  - DEATH [None]
  - DRUG DOSE OMISSION [None]
  - INSOMNIA [None]
  - HALLUCINATION [None]
